FAERS Safety Report 4518986-3 (Version None)
Quarter: 2004Q4

REPORT INFORMATION
  Report Type: 
  Country: None (occurrence: None)
  Receive Date: 20041201
  Receipt Date: 20041118
  Transmission Date: 20050328
  Serious: Yes (Hospitalization)
  Sender: FDA-Public Use
  Company Number: 2004095957

PATIENT
  Age: 60 Year
  Sex: Male

DRUGS (4)
  1. DIFLUCAN [Suspect]
     Indication: FUNGAL INFECTION
     Dosage: 1 D, ORAL
     Route: 048
     Dates: start: 20040426, end: 20040430
  2. PHENOXYMETHYL PENICILLIN [Suspect]
     Indication: NASOPHARYNGITIS
     Dosage: 1 D, ORAL
     Route: 048
     Dates: start: 20040416, end: 20040418
  3. METOPROLOL TARTRATE [Suspect]
     Indication: CARDIAC DISORDER
     Dosage: 100 MG, ORAL
     Route: 048
  4. AMIODARONE HCL [Suspect]
     Indication: CARDIAC DISORDER
     Dosage: 100 MG (100 MG, 1 IN 1 D), ORAL
     Route: 048
     Dates: start: 19900101, end: 20040503

REACTIONS (10)
  - ALANINE AMINOTRANSFERASE INCREASED [None]
  - ASPARTATE AMINOTRANSFERASE INCREASED [None]
  - DERMATOMYOSITIS [None]
  - ERYTHEMA [None]
  - FUNGAL INFECTION [None]
  - HYPERSENSITIVITY [None]
  - MOUTH ULCERATION [None]
  - MUSCLE NECROSIS [None]
  - RHABDOMYOLYSIS [None]
  - TRANSAMINASES INCREASED [None]
